FAERS Safety Report 8172818-3 (Version None)
Quarter: 2012Q1

REPORT INFORMATION
  Report Type: 
  Country: None (occurrence: None)
  Receive Date: 20120229
  Receipt Date: 20120222
  Transmission Date: 20120608
  Serious: Yes (Hospitalization, Other)
  Sender: FDA-Public Use
  Company Number: DE-AMGEN-DEUSP2011064951

PATIENT
  Age: 74 Year
  Sex: Female
  Weight: 67 kg

DRUGS (3)
  1. CALCIUM [Concomitant]
     Dosage: UNK UNK, QD
     Route: 048
  2. FASLODEX [Concomitant]
     Indication: BREAST CANCER
     Dosage: 200 MG, Q4WK
     Route: 058
     Dates: start: 20110126
  3. XGEVA [Suspect]
     Indication: PRODUCT USED FOR UNKNOWN INDICATION
     Dosage: 120 MG, Q4WK
     Route: 058
     Dates: start: 20110518, end: 20111005

REACTIONS (1)
  - OSTEONECROSIS OF JAW [None]
